FAERS Safety Report 23945471 (Version 1)
Quarter: 2024Q2

REPORT INFORMATION
  Report Type: Spontaneous
  Country: HU (occurrence: HU)
  Receive Date: 20240606
  Receipt Date: 20240606
  Transmission Date: 20240716
  Serious: Yes (Hospitalization, Other)
  Sender: FDA-Public Use
  Company Number: HU-Accord-425822

PATIENT
  Age: 60 Year
  Sex: Male

DRUGS (6)
  1. PEMETREXED [Suspect]
     Active Substance: PEMETREXED
     Indication: Lung adenocarcinoma stage III
     Dosage: UNK
     Route: 042
     Dates: start: 2022
  2. PEMBROLIZUMAB [Suspect]
     Active Substance: PEMBROLIZUMAB
     Indication: Lung adenocarcinoma stage III
     Dosage: UNK
     Route: 042
     Dates: start: 2022
  3. CARBOPLATIN [Suspect]
     Active Substance: CARBOPLATIN
     Indication: Lung adenocarcinoma stage III
     Dosage: UNK
     Route: 042
     Dates: start: 2022
  4. PERMETHRIN [Concomitant]
     Active Substance: PERMETHRIN
     Indication: Acarodermatitis
     Dosage: 30 GRAM (STRENGTH: 5%AFTER 6TH CYCLE)
     Route: 061
  5. MEDROL [Concomitant]
     Active Substance: METHYLPREDNISOLONE
     Indication: Erythema
     Dosage: 32 MILLIGRAM (AFTER 4TH CYCLE)
     Route: 048
  6. CHLOROPYRAMINE HYDROCHLORIDE [Concomitant]
     Active Substance: CHLOROPYRAMINE HYDROCHLORIDE
     Indication: Erythema
     Dosage: AFTER 4TH CYCLE
     Route: 048

REACTIONS (4)
  - Papule [Recovered/Resolved]
  - Erythema [Recovered/Resolved]
  - Cutaneous symptom [Recovered/Resolved]
  - Pancytopenia [Recovered/Resolved]
